FAERS Safety Report 4696368-1 (Version None)
Quarter: 2005Q2

REPORT INFORMATION
  Report Type: 
  Country: None (occurrence: None)
  Receive Date: 20050620
  Receipt Date: 20050610
  Transmission Date: 20051028
  Serious: Yes (Hospitalization, Other)
  Sender: FDA-Public Use
  Company Number: KII-2005-0017019

PATIENT
  Age: 36 Year
  Sex: Female

DRUGS (2)
  1. MORPHINE SULFATE [Suspect]
     Indication: DRUG USE FOR UNKNOWN INDICATION
     Dosage: INTRAVENOUS
     Route: 042
  2. COCAINE [Suspect]
     Indication: DRUG USE FOR UNKNOWN INDICATION
     Dosage: SEE TEXT

REACTIONS (22)
  - AGGRESSION [None]
  - BASE EXCESS ABNORMAL [None]
  - BLOOD BICARBONATE DECREASED [None]
  - BLOOD CHLORIDE DECREASED [None]
  - BLOOD GLUCOSE INCREASED [None]
  - BLOOD PH DECREASED [None]
  - BLOOD POTASSIUM INCREASED [None]
  - BLOOD UREA INCREASED [None]
  - CONFUSIONAL STATE [None]
  - DEPRESSED LEVEL OF CONSCIOUSNESS [None]
  - DRUG ABUSER [None]
  - DRUG SCREEN POSITIVE [None]
  - DYSARTHRIA [None]
  - DYSPHAGIA [None]
  - HEART RATE INCREASED [None]
  - LEGAL PROBLEM [None]
  - POLYSUBSTANCE ABUSE [None]
  - PUPIL FIXED [None]
  - PUPILS UNEQUAL [None]
  - SOMNOLENCE [None]
  - URINE KETONE BODY PRESENT [None]
  - WHITE BLOOD CELL COUNT INCREASED [None]
